FAERS Safety Report 4610600-1 (Version None)
Quarter: 2005Q1

REPORT INFORMATION
  Report Type: 
  Country: None (occurrence: None)
  Receive Date: 20050316
  Receipt Date: 20050308
  Transmission Date: 20050727
  Serious: Yes (Death)
  Sender: FDA-Public Use
  Company Number: 05-03-0361

PATIENT
  Age: 81 Year
  Sex: Female

DRUGS (2)
  1. CLOZAPINE [Suspect]
     Indication: DEMENTIA
     Dosage: 12.5-250MG QD ORAL
     Route: 048
     Dates: start: 20000201, end: 20050206
  2. CLOZAPINE [Suspect]
     Indication: HALLUCINATION
     Dosage: 12.5-250MG QD ORAL
     Route: 048
     Dates: start: 20000201, end: 20050206

REACTIONS (2)
  - CARDIAC FAILURE [None]
  - PNEUMONIA [None]
